FAERS Safety Report 25137087 (Version 1)
Quarter: 2025Q1

REPORT INFORMATION
  Report Type: Spontaneous
  Country: CN (occurrence: CN)
  Receive Date: 20250328
  Receipt Date: 20250328
  Transmission Date: 20250409
  Serious: Yes (Hospitalization)
  Sender: ROCHE
  Company Number: CN-ROCHE-10000244548

PATIENT
  Age: 60 Year
  Sex: Female
  Weight: 60 kg

DRUGS (3)
  1. TRASTUZUMAB [Suspect]
     Active Substance: TRASTUZUMAB
     Indication: Breast cancer
     Route: 058
     Dates: start: 20250224, end: 20250224
  2. DOCETAXEL [Suspect]
     Active Substance: DOCETAXEL
     Indication: Breast cancer
     Route: 042
     Dates: start: 20250224, end: 20250224
  3. PYROTINIB MALEATE [Concomitant]
     Active Substance: PYROTINIB MALEATE
     Indication: Breast cancer
     Dosage: PYRROTINIB TABLETS D1-D21, Q3W
     Route: 048
     Dates: start: 20250224, end: 20250302

REACTIONS (1)
  - Myelosuppression [Recovering/Resolving]

NARRATIVE: CASE EVENT DATE: 20250302
